FAERS Safety Report 10706239 (Version 1)
Quarter: 2015Q1

REPORT INFORMATION
  Report Type: Spontaneous
  Country: US (occurrence: None)
  Receive Date: 20150109
  Receipt Date: 20150109
  Transmission Date: 20150721
  Serious: Yes (Death, Hospitalization)
  Sender: FDA-Public Use
  Company Number: None

PATIENT
  Age: 53 Year
  Sex: Male
  Weight: 62.3 kg

DRUGS (2)
  1. DEXAMETHASONE. [Concomitant]
     Active Substance: DEXAMETHASONE
  2. TAXOTERE [Suspect]
     Active Substance: DOCETAXEL
     Dates: start: 20141222

REACTIONS (5)
  - Thrombocytopenia [None]
  - Melaena [None]
  - Haemoglobin decreased [None]
  - Haematemesis [None]
  - Hypotension [None]

NARRATIVE: CASE EVENT DATE: 20141228
